FAERS Safety Report 7310616-0 (Version None)
Quarter: 2011Q1

REPORT INFORMATION
  Report Type: 
  Country: None (occurrence: None)
  Receive Date: 20110224
  Receipt Date: 20100602
  Transmission Date: 20110831
  Serious: No
  Sender: FDA-Public Use
  Company Number: US-BRISTOL-MYERS SQUIBB COMPANY-15077266

PATIENT
  Sex: Male

DRUGS (3)
  1. CADUET [Concomitant]
  2. GLUCOPHAGE [Suspect]
     Indication: TYPE 2 DIABETES MELLITUS
     Dosage: LOT # NOT AVAILABLE FOR PRODUCT EXPIRING 30-SEP-2012. DURATION IS 2-3 YEARS; INCREASE TO 1000MG BID
  3. ZESTORETIC [Concomitant]

REACTIONS (1)
  - CONSTIPATION [None]
